FAERS Safety Report 8269791-6 (Version None)
Quarter: 2012Q2

REPORT INFORMATION
  Report Type: 
  Country: None (occurrence: None)
  Receive Date: 20120405
  Receipt Date: 20120403
  Transmission Date: 20120825
  Serious: Yes (Death)
  Sender: FDA-Public Use
  Company Number: ADR-2011-10869

PATIENT
  Age: 33 Year
  Sex: Female

DRUGS (5)
  1. DROPERIDOL [Concomitant]
  2. LIORESAL [Suspect]
     Indication: MUSCLE SPASTICITY
     Dosage: MCG, DAILY, INTRATHECAL
     Route: 037
  3. DULAUDID [Concomitant]
  4. CLONIDINE [Concomitant]
  5. BUPIVACAINE HCL [Concomitant]

REACTIONS (2)
  - BREAST CANCER [None]
  - NEOPLASM [None]
